FAERS Safety Report 5084479-0 (Version None)
Quarter: 2006Q3

REPORT INFORMATION
  Report Type: 
  Country: None (occurrence: None)
  Receive Date: 20060821
  Receipt Date: 20060810
  Transmission Date: 20061208
  Serious: Yes (Other)
  Sender: FDA-Public Use
  Company Number: US-AVENTIS-200618405GDDC

PATIENT
  Age: 26 Year
  Sex: Female
  Weight: 100 kg

DRUGS (4)
  1. ARAVA [Suspect]
     Indication: RHEUMATOID ARTHRITIS
     Dosage: DOSE: 1 PILL
     Dates: start: 20060127, end: 20060131
  2. PRENATAL VITAMINS [Concomitant]
     Dosage: DOSE: 3 PILLS
     Route: 048
     Dates: start: 20060201
  3. ACETAMINOPHEN [Concomitant]
     Indication: RHEUMATOID ARTHRITIS
     Route: 048
     Dates: start: 20060127, end: 20060131
  4. PARAMETHASONE ACETATE [Concomitant]
     Indication: RHEUMATOID ARTHRITIS
     Route: 048
     Dates: start: 20060127, end: 20060131

REACTIONS (4)
  - ABORTION SPONTANEOUS [None]
  - DRUG EXPOSURE BEFORE PREGNANCY [None]
  - PREGNANCY INDUCED HYPERTENSION [None]
  - TWIN PREGNANCY [None]
